FAERS Safety Report 5819734-7 (Version None)
Quarter: 2008Q3

REPORT INFORMATION
  Report Type: 
  Country: None (occurrence: None)
  Receive Date: 20080717
  Receipt Date: 20080703
  Transmission Date: 20090109
  Serious: Yes (Death)
  Sender: FDA-Public Use
  Company Number: US022277

PATIENT

DRUGS (1)
  1. FENTANYL-100 [Suspect]

REACTIONS (2)
  - DRUG ABUSE [None]
  - DRUG TOXICITY [None]
